FAERS Safety Report 5632421-3 (Version None)
Quarter: 2008Q1

REPORT INFORMATION
  Report Type: 
  Country: None (occurrence: None)
  Receive Date: 20080220
  Receipt Date: 20070222
  Transmission Date: 20080703
  Serious: No
  Sender: FDA-Public Use
  Company Number: US-ASTRAZENECA-2007UW03211

PATIENT
  Age: 87 Year
  Sex: Male
  Weight: 83.5 kg

DRUGS (5)
  1. PLENDIL [Suspect]
     Indication: HYPERTENSION
     Route: 048
  2. ASPIRIN [Concomitant]
  3. ZETIA [Concomitant]
  4. PROSCAR [Concomitant]
  5. HYDROCHLOROTHIAZIDE [Concomitant]

REACTIONS (3)
  - HAEMORRHAGE [None]
  - IMPAIRED HEALING [None]
  - OEDEMA PERIPHERAL [None]
